FAERS Safety Report 22265332 (Version 1)
Quarter: 2023Q2

REPORT INFORMATION
  Report Type: Report from Study
  Country: MX (occurrence: MX)
  Receive Date: 20230428
  Receipt Date: 20230428
  Transmission Date: 20230722
  Serious: Yes (Other)
  Sender: FDA-Public Use
  Company Number: MX-002147023-NVSC2023MX095376

PATIENT
  Age: 50 Year
  Sex: Female
  Weight: 67 kg

DRUGS (5)
  1. TEGRETOL [Suspect]
     Active Substance: CARBAMAZEPINE
     Indication: Insomnia
     Dosage: 0.25 DOSAGE FORM, Q12H
     Route: 048
     Dates: start: 20221118, end: 20230118
  2. METFORMIN [Concomitant]
     Active Substance: METFORMIN HYDROCHLORIDE
     Indication: Polycystic ovaries
     Dosage: 850 MG, Q12H (START: 10 YEARS AGO)
     Route: 048
  3. TELMISARTAN [Concomitant]
     Active Substance: TELMISARTAN
     Indication: Hypertension
     Dosage: 40 MG, QD (START: 5 YEARS AGO)
     Route: 048
  4. GABAPENTIN [Concomitant]
     Active Substance: GABAPENTIN
     Indication: Pain in extremity
     Dosage: 1 DOSAGE FORM QD, AT NIGHT
     Route: 048
     Dates: start: 20221227
  5. GABAPENTIN [Concomitant]
     Active Substance: GABAPENTIN
     Indication: Paraesthesia

REACTIONS (6)
  - Multiple sclerosis relapse [Unknown]
  - Sensory loss [Unknown]
  - Hypoaesthesia [Unknown]
  - Genital hypoaesthesia [Unknown]
  - Wrong technique in product usage process [Unknown]
  - Product use in unapproved indication [Unknown]

NARRATIVE: CASE EVENT DATE: 20221118
